FAERS Safety Report 13541818 (Version 1)
Quarter: 2017Q2

REPORT INFORMATION
  Report Type: Spontaneous
  Country: US (occurrence: US)
  Receive Date: 20170512
  Receipt Date: 20170512
  Transmission Date: 20170830
  Serious: No
  Sender: FDA-Public Use
  Company Number: US-PERRIGO-16US018325

PATIENT
  Age: 75 Year
  Sex: Male
  Weight: 91.61 kg

DRUGS (2)
  1. TRIAMCINOLONE ACETONIDE. [Suspect]
     Active Substance: TRIAMCINOLONE ACETONIDE
     Dosage: 1 SMALL APPLICATION, BID
     Route: 061
     Dates: start: 20160713
  2. TRIAMCINOLONE ACETONIDE. [Suspect]
     Active Substance: TRIAMCINOLONE ACETONIDE
     Indication: RASH
     Dosage: 1 SMALL APPLICATION, BID
     Route: 061
     Dates: start: 201605, end: 201605

REACTIONS (1)
  - Drug ineffective [Unknown]

NARRATIVE: CASE EVENT DATE: 20160713
